FAERS Safety Report 13801415 (Version 1)
Quarter: 2017Q3

REPORT INFORMATION
  Report Type: Spontaneous
  Country: US (occurrence: US)
  Receive Date: 20170727
  Receipt Date: 20170727
  Transmission Date: 20171127
  Serious: No
  Sender: FDA-Public Use
  Company Number: US-SEBELA IRELAND LIMITED-2016SEB01459

PATIENT
  Sex: Female

DRUGS (1)
  1. BRISDELLE [Suspect]
     Active Substance: PAROXETINE MESYLATE
     Indication: HOT FLUSH
     Dosage: UNK
     Dates: start: 2016, end: 20160820

REACTIONS (6)
  - Insomnia [Unknown]
  - Vomiting [Unknown]
  - Restlessness [Unknown]
  - Nausea [Unknown]
  - Headache [Unknown]
  - Photophobia [Unknown]

NARRATIVE: CASE EVENT DATE: 2016
